FAERS Safety Report 5416824-8 (Version None)
Quarter: 2007Q3

REPORT INFORMATION
  Report Type: 
  Country: None (occurrence: None)
  Receive Date: 20070816
  Receipt Date: 20070814
  Transmission Date: 20080115
  Serious: Yes (Other)
  Sender: FDA-Public Use
  Company Number: US-GENENTECH-245564

PATIENT
  Sex: Female
  Weight: 77.098 kg

DRUGS (1)
  1. XOLAIR [Suspect]
     Indication: DRUG USE FOR UNKNOWN INDICATION
     Dosage: 375 MG, Q2W
     Route: 058
     Dates: start: 20050809

REACTIONS (1)
  - SERUM SICKNESS [None]
